FAERS Safety Report 19382821 (Version 3)
Quarter: 2021Q3

REPORT INFORMATION
  Report Type: Spontaneous
  Country: SA (occurrence: SA)
  Receive Date: 20210607
  Receipt Date: 20210826
  Transmission Date: 20211014
  Serious: Yes (Hospitalization, Other)
  Sender: FDA-Public Use
  Company Number: NVSC2021SA123911

PATIENT
  Age: 39 Year
  Sex: Male

DRUGS (1)
  1. ENTRESTO [Suspect]
     Active Substance: SACUBITRIL\VALSARTAN
     Indication: CARDIAC FAILURE
     Dosage: 100 MG, BID
     Route: 048

REACTIONS (7)
  - Face oedema [Unknown]
  - Upper airway obstruction [Unknown]
  - Flushing [Unknown]
  - Eyelid oedema [Unknown]
  - Erythema [Unknown]
  - Anaphylactic reaction [Recovered/Resolved]
  - Generalised oedema [Recovered/Resolved]
